FAERS Safety Report 4391758-9 (Version None)
Quarter: 2004Q3

REPORT INFORMATION
  Report Type: 
  Country: None (occurrence: None)
  Receive Date: 20040701
  Receipt Date: 20040618
  Transmission Date: 20050211
  Serious: Yes (Death, Hospitalization)
  Sender: FDA-Public Use
  Company Number: 2004032851

PATIENT
  Age: 77 Year
  Sex: Female

DRUGS (13)
  1. NEURONTIN [Suspect]
     Indication: NEUROPATHIC PAIN
     Dosage: 900 MG (300 MG, 3 IN 1 D),  ORAL
     Route: 048
     Dates: start: 20040201, end: 20040301
  2. NEURONTIN [Suspect]
     Indication: PAIN IN EXTREMITY
     Dosage: 900 MG (300 MG, 3 IN 1 D),  ORAL
     Route: 048
     Dates: start: 20040201, end: 20040301
  3. WARFARIN SODIUM [Concomitant]
  4. SPIRONOLACTONE [Concomitant]
  5. LISINOPRIL [Concomitant]
  6. LEVOTHYROXINE SODIUM [Concomitant]
  7. METOPROLOL TARTRATE [Concomitant]
  8. COLCHICINE (COLCHICINE) [Concomitant]
  9. MAGNESIUM GLUCONATE (MAGNESIUM GLUCONATE) [Concomitant]
  10. CALCIUM (CALCIUM) [Concomitant]
  11. PANTOPRAZOLE (PANTOPRAZOLE) [Concomitant]
  12. TORSEMIDE [Concomitant]
  13. INSULIN [Concomitant]

REACTIONS (10)
  - ABNORMAL BEHAVIOUR [None]
  - AGITATION [None]
  - DELIRIUM [None]
  - DEPRESSED LEVEL OF CONSCIOUSNESS [None]
  - FLUID INTAKE REDUCED [None]
  - HYPERSOMNIA [None]
  - MARKEDLY REDUCED DIETARY INTAKE [None]
  - MOANING [None]
  - SEDATION [None]
  - URINARY TRACT INFECTION [None]
